FAERS Safety Report 4869366-2 (Version None)
Quarter: 2005Q4

REPORT INFORMATION
  Report Type: 
  Country: None (occurrence: None)
  Receive Date: 20051230
  Receipt Date: 20051221
  Transmission Date: 20060501
  Serious: Yes (Hospitalization)
  Sender: FDA-Public Use
  Company Number: JP-NOVOPROD-249565

PATIENT
  Age: 42 Year
  Sex: Male

DRUGS (1)
  1. NOVOLIN 30R CHU [Suspect]
     Indication: DIABETES MELLITUS INSULIN-DEPENDENT
     Route: 058

REACTIONS (1)
  - HEPATOCELLULAR DAMAGE [None]
